FAERS Safety Report 23533082 (Version 3)
Quarter: 2024Q3

REPORT INFORMATION
  Report Type: Spontaneous
  Country: US (occurrence: US)
  Receive Date: 20240216
  Receipt Date: 20240701
  Transmission Date: 20241017
  Serious: No
  Sender: SANOFI AVENTIS
  Company Number: US-SA-SAC20240213001601

PATIENT
  Age: 17 Year
  Sex: Male

DRUGS (2)
  1. ALTUVIIIO [Suspect]
     Active Substance: EFANESOCTOCOG ALFA
     Dosage: 4000 IU, AS DIRECTED
     Route: 042
  2. ALTUVIIIO [Suspect]
     Active Substance: EFANESOCTOCOG ALFA
     Dosage: 4500 IU
     Route: 065

REACTIONS (6)
  - Soft tissue swelling [Unknown]
  - Traumatic haemorrhage [Recovered/Resolved]
  - Fall [Unknown]
  - Traumatic haemorrhage [Unknown]
  - Ligament sprain [Unknown]
  - Haemorrhage [Unknown]

NARRATIVE: CASE EVENT DATE: 20240101
